FAERS Safety Report 6165389-4 (Version None)
Quarter: 2009Q2

REPORT INFORMATION
  Report Type: 
  Country: None (occurrence: None)
  Receive Date: 20090423
  Receipt Date: 20090412
  Transmission Date: 20091009
  Serious: Yes (Other)
  Sender: FDA-Public Use
  Company Number: CL-PFIZER INC-2009198291

PATIENT

DRUGS (1)
  1. GENOTONORM [Suspect]
     Dosage: 3.3 IU, 1X/DAY

REACTIONS (4)
  - CONVULSION [None]
  - MUSCLE RIGIDITY [None]
  - SYNCOPE [None]
  - URINARY INCONTINENCE [None]
